FAERS Safety Report 7762771-6 (Version None)
Quarter: 2011Q3

REPORT INFORMATION
  Report Type: 
  Country: None (occurrence: None)
  Receive Date: 20110920
  Receipt Date: 20100505
  Transmission Date: 20111222
  Serious: Yes (Hospitalization)
  Sender: FDA-Public Use
  Company Number: US-JNJFOC-20110906237

PATIENT
  Sex: Female

DRUGS (4)
  1. CONCENTRATED TYLENOL INFANT DROPS [Suspect]
     Indication: PAIN
     Route: 065
  2. CONCENTRATED TYLENOL INFANT DROPS [Suspect]
     Route: 065
  3. CHILDREN'S MOTRIN [Suspect]
     Indication: PAIN
     Route: 065
  4. CHILDREN'S MOTRIN [Suspect]
     Route: 065

REACTIONS (3)
  - GASTROINTESTINAL PAIN [None]
  - PRODUCT QUALITY ISSUE [None]
  - ABDOMINAL PAIN UPPER [None]
